FAERS Safety Report 18661928 (Version 10)
Quarter: 2024Q1

REPORT INFORMATION
  Report Type: Report from Study
  Country: CA (occurrence: CA)
  Receive Date: 20201224
  Receipt Date: 20240122
  Transmission Date: 20240409
  Serious: Yes (Other)
  Sender: FDA-Public Use
  Company Number: CA-TAKEDA-CA202032240

PATIENT
  Sex: Female
  Weight: 52 kg

DRUGS (40)
  1. TEDUGLUTIDE [Suspect]
     Active Substance: TEDUGLUTIDE
     Indication: Short-bowel syndrome
     Dosage: 2.8 MILLIGRAM, QD
     Route: 065
     Dates: start: 20180528
  2. TEDUGLUTIDE [Suspect]
     Active Substance: TEDUGLUTIDE
     Indication: Short-bowel syndrome
     Dosage: 2.8 MILLIGRAM, QD
     Route: 065
     Dates: start: 20180528
  3. TEDUGLUTIDE [Suspect]
     Active Substance: TEDUGLUTIDE
     Indication: Short-bowel syndrome
     Dosage: 2.8 MILLIGRAM, QD
     Route: 065
     Dates: start: 20180528
  4. TEDUGLUTIDE [Suspect]
     Active Substance: TEDUGLUTIDE
     Indication: Short-bowel syndrome
     Dosage: 2.8 MILLIGRAM, QD
     Route: 065
     Dates: start: 20180528
  5. TEDUGLUTIDE [Suspect]
     Active Substance: TEDUGLUTIDE
     Dosage: 2 DOSAGE FORM, Q2WEEKS
     Route: 050
  6. TEDUGLUTIDE [Suspect]
     Active Substance: TEDUGLUTIDE
     Dosage: 2 DOSAGE FORM, Q2WEEKS
     Route: 050
  7. TEDUGLUTIDE [Suspect]
     Active Substance: TEDUGLUTIDE
     Dosage: 2 DOSAGE FORM, Q2WEEKS
     Route: 050
  8. TEDUGLUTIDE [Suspect]
     Active Substance: TEDUGLUTIDE
     Dosage: 2 DOSAGE FORM, Q2WEEKS
     Route: 050
  9. TEDUGLUTIDE [Suspect]
     Active Substance: TEDUGLUTIDE
     Dosage: 2.8 MILLIGRAM, QD
     Route: 050
  10. TEDUGLUTIDE [Suspect]
     Active Substance: TEDUGLUTIDE
     Dosage: 2.8 MILLIGRAM, QD
     Route: 050
  11. TEDUGLUTIDE [Suspect]
     Active Substance: TEDUGLUTIDE
     Dosage: 2.8 MILLIGRAM, QD
     Route: 050
  12. TEDUGLUTIDE [Suspect]
     Active Substance: TEDUGLUTIDE
     Dosage: 2.8 MILLIGRAM, QD
     Route: 050
  13. TEDUGLUTIDE [Suspect]
     Active Substance: TEDUGLUTIDE
     Dosage: UNK UNK, QD
     Route: 058
  14. TEDUGLUTIDE [Suspect]
     Active Substance: TEDUGLUTIDE
     Dosage: UNK UNK, QD
     Route: 058
  15. TEDUGLUTIDE [Suspect]
     Active Substance: TEDUGLUTIDE
     Dosage: UNK UNK, QD
     Route: 058
  16. TEDUGLUTIDE [Suspect]
     Active Substance: TEDUGLUTIDE
     Dosage: UNK UNK, QD
     Route: 058
  17. ELAVIL [Concomitant]
     Active Substance: AMITRIPTYLINE HYDROCHLORIDE
     Indication: Product used for unknown indication
     Dosage: 25 MILLIGRAM, QD
     Route: 048
  18. ATIVAN [Concomitant]
     Active Substance: LORAZEPAM
     Indication: Product used for unknown indication
     Dosage: 0.5 MILLIGRAM, QD
     Route: 065
  19. POTASSIUM [Concomitant]
     Active Substance: POTASSIUM
     Indication: Product used for unknown indication
     Dosage: 1 DOSAGE FORM, QD
     Route: 065
  20. POTASSIUM [Concomitant]
     Active Substance: POTASSIUM
     Dosage: 2 DOSAGE FORM, QD
     Route: 065
     Dates: start: 201903
  21. CALCIUM [Concomitant]
     Active Substance: CALCIUM
     Dosage: 500 MILLIGRAM, QD
     Route: 065
  22. MAGNESIUM [Concomitant]
     Active Substance: MAGNESIUM
     Indication: Product used for unknown indication
     Dosage: 200 MILLIGRAM, TID
     Route: 065
  23. SYNTHROID [Concomitant]
     Active Substance: LEVOTHYROXINE SODIUM
     Indication: Product used for unknown indication
     Dosage: 7 MILLIGRAM
     Route: 065
     Dates: start: 20200407
  24. SYNTHROID [Concomitant]
     Active Substance: LEVOTHYROXINE SODIUM
     Dosage: 75 MILLIGRAM
     Route: 065
  25. SYNTHROID [Concomitant]
     Active Substance: LEVOTHYROXINE SODIUM
     Dosage: 88 MILLIGRAM, QD
     Route: 065
  26. PANTOPRAZOLE SODIUM [Concomitant]
     Active Substance: PANTOPRAZOLE SODIUM
     Indication: Product used for unknown indication
     Dosage: 40 MILLIGRAM, QD
     Route: 065
  27. VALSARTAN [Concomitant]
     Active Substance: VALSARTAN
     Dosage: 40 MILLIGRAM, QD
     Route: 065
  28. VITAMIN D [Concomitant]
     Active Substance: VITAMIN D NOS
     Indication: Product used for unknown indication
     Dosage: UNK UNK, 3/WEEK
     Route: 065
  29. MAVICAM [Concomitant]
     Indication: Product used for unknown indication
     Dosage: UNK
     Route: 065
  30. SOLIFENACIN [Concomitant]
     Active Substance: SOLIFENACIN
     Indication: Hypotonia
     Dosage: 5 MILLIGRAM, QD
     Route: 065
     Dates: start: 20181203, end: 2020
  31. TAMSULOSIN [Concomitant]
     Active Substance: TAMSULOSIN
     Indication: Hypotonia
     Dosage: 0.4 MILLIGRAM, QD
     Route: 065
     Dates: start: 20181203, end: 2020
  32. Solucal [Concomitant]
     Indication: Product used for unknown indication
     Dosage: 25 MILLIGRAM, QD
     Route: 065
  33. COLACE [Concomitant]
     Active Substance: DOCUSATE SODIUM
     Indication: Faeces soft
     Dosage: UNK UNK, BID
     Route: 065
  34. LAX A DAY PHARMA [Concomitant]
     Indication: Faeces hard
     Dosage: UNK UNK, QD
     Route: 065
  35. DIOVAN [Concomitant]
     Active Substance: VALSARTAN
     Indication: Product used for unknown indication
     Dosage: UNK
     Route: 065
     Dates: end: 20200927
  36. ASPIRIN [Concomitant]
     Active Substance: ASPIRIN
     Dosage: 80 MILLIGRAM, QD
     Route: 065
  37. BISOPROLOL [Concomitant]
     Active Substance: BISOPROLOL\BISOPROLOL FUMARATE
     Dosage: UNK UNK, QD
     Route: 065
  38. CIPRALEX [Concomitant]
     Active Substance: ESCITALOPRAM OXALATE
     Dosage: UNK
     Route: 065
  39. XARELTO [Concomitant]
     Active Substance: RIVAROXABAN
     Dosage: UNK
     Route: 065
  40. BERINERT [Concomitant]
     Active Substance: HUMAN C1-ESTERASE INHIBITOR
     Dosage: UNK
     Route: 065

REACTIONS (29)
  - Hyperkalaemia [Unknown]
  - Nephrolithiasis [Not Recovered/Not Resolved]
  - Intestinal stenosis [Not Recovered/Not Resolved]
  - Intestinal obstruction [Not Recovered/Not Resolved]
  - Pericarditis [Recovered/Resolved]
  - Injection site bruising [Unknown]
  - Diarrhoea [Not Recovered/Not Resolved]
  - Chest pain [Unknown]
  - Pain in extremity [Unknown]
  - Skin warm [Unknown]
  - Asthenia [Not Recovered/Not Resolved]
  - Periarthritis [Unknown]
  - Pain [Unknown]
  - Infusion site haemorrhage [Unknown]
  - Infusion site erythema [Recovered/Resolved]
  - Infusion site mass [Recovered/Resolved]
  - Injection site inflammation [Recovered/Resolved]
  - Blood creatinine decreased [Unknown]
  - Vitamin B12 decreased [Unknown]
  - Weight decreased [Not Recovered/Not Resolved]
  - Fatigue [Unknown]
  - Infusion site bruising [Unknown]
  - Fluid retention [Unknown]
  - Injection site pain [Recovered/Resolved]
  - Decreased appetite [Recovering/Resolving]
  - Peripheral swelling [Recovered/Resolved]
  - Cardiac disorder [Unknown]
  - Heart rate increased [Unknown]
  - Inappropriate schedule of product administration [Unknown]
